FAERS Safety Report 17745741 (Version 2)
Quarter: 2021Q1

REPORT INFORMATION
  Report Type: Report from Study
  Country: None (occurrence: US)
  Receive Date: 20200505
  Receipt Date: 20210208
  Transmission Date: 20210419
  Serious: Yes (Hospitalization)
  Sender: FDA-Public Use
  Company Number: US-ABBVIE-20K-163-3390704-00

PATIENT
  Age: 63 Year
  Sex: Male

DRUGS (1)
  1. SKYRIZI [Suspect]
     Active Substance: RISANKIZUMAB-RZAA
     Indication: PSORIASIS
     Route: 058

REACTIONS (2)
  - SARS-CoV-2 test positive [Recovering/Resolving]
  - Cough [Unknown]

NARRATIVE: CASE EVENT DATE: 20200414
